FAERS Safety Report 18097077 (Version 1)
Quarter: 2020Q3

REPORT INFORMATION
  Report Type: Spontaneous
  Country: US (occurrence: US)
  Receive Date: 20200731
  Receipt Date: 20200731
  Transmission Date: 20201103
  Serious: Yes (Hospitalization, Other)
  Sender: FDA-Public Use
  Company Number: US-CIPLA LTD.-2020US05086

PATIENT

DRUGS (14)
  1. VALPROIC ACID. [Interacting]
     Active Substance: VALPROIC ACID
     Dosage: 2000 MG, DAILY
     Route: 042
  2. LAMOTRIGINE. [Suspect]
     Active Substance: LAMOTRIGINE
     Indication: EPILEPSY
     Dosage: UNK
     Route: 065
  3. ZONISAMIDE. [Interacting]
     Active Substance: ZONISAMIDE
     Indication: EPILEPSY
     Dosage: 50 MILLIGRAM, DAILY
     Route: 065
  4. ZONISAMIDE. [Interacting]
     Active Substance: ZONISAMIDE
     Dosage: 500 MILLIGRAM, DAILY
     Route: 065
  5. VALPROIC ACID. [Interacting]
     Active Substance: VALPROIC ACID
     Indication: EPILEPSY
     Dosage: 1500 MG, DAILY
     Route: 042
  6. VALPROIC ACID. [Interacting]
     Active Substance: VALPROIC ACID
     Dosage: 750 MG, UNK
     Route: 042
  7. LEVETIRACETAM. [Concomitant]
     Active Substance: LEVETIRACETAM
     Dosage: 4000 MG, DAILY
     Route: 065
  8. ZONISAMIDE. [Interacting]
     Active Substance: ZONISAMIDE
     Dosage: 350 MILLIGRAM, DAILY
     Route: 065
  9. ZONISAMIDE. [Interacting]
     Active Substance: ZONISAMIDE
     Dosage: 600 MILLIGRAM, DAILY
     Route: 065
  10. LORAZEPAM. [Concomitant]
     Active Substance: LORAZEPAM
     Indication: STATUS EPILEPTICUS
     Dosage: UNK
     Route: 042
  11. OXCARBAZEPINE. [Concomitant]
     Active Substance: OXCARBAZEPINE
     Indication: PARTIAL SEIZURES
     Dosage: UNK
     Route: 065
  12. LEVETIRACETAM. [Concomitant]
     Active Substance: LEVETIRACETAM
     Indication: EPILEPSY
     Dosage: 2000 MILLIGRAM, BID
     Route: 065
  13. PREGABALIN. [Concomitant]
     Active Substance: PREGABALIN
     Indication: PARTIAL SEIZURES
     Dosage: UNK
     Route: 065
  14. TOPIRAMATE. [Concomitant]
     Active Substance: TOPIRAMATE
     Indication: PARTIAL SEIZURES
     Dosage: UNK
     Route: 065

REACTIONS (7)
  - Aminoaciduria [Recovering/Resolving]
  - Drug interaction [Unknown]
  - Cytotoxic oedema [Recovering/Resolving]
  - Transaminases increased [Unknown]
  - Pneumonia [Recovering/Resolving]
  - Metabolic acidosis [Recovering/Resolving]
  - Hyperammonaemic encephalopathy [Recovering/Resolving]
